FAERS Safety Report 25897612 (Version 1)
Quarter: 2025Q4

REPORT INFORMATION
  Report Type: Spontaneous
  Country: CN (occurrence: CN)
  Receive Date: 20251008
  Receipt Date: 20251008
  Transmission Date: 20260118
  Serious: Yes (Hospitalization)
  Sender: NOVARTIS
  Company Number: CN-002147023-NVSC2025CN152722

PATIENT
  Age: 40 Year
  Sex: Female
  Weight: 51.9 kg

DRUGS (14)
  1. MYFORTIC [Suspect]
     Active Substance: MYCOPHENOLATE SODIUM
     Indication: Chronic kidney disease
     Dosage: 720 MG, BID
     Route: 048
     Dates: start: 20250910, end: 20250927
  2. MYFORTIC [Suspect]
     Active Substance: MYCOPHENOLATE SODIUM
     Indication: Nephrogenic anaemia
  3. MYFORTIC [Suspect]
     Active Substance: MYCOPHENOLATE SODIUM
     Indication: Hyperparathyroidism secondary
  4. MYFORTIC [Suspect]
     Active Substance: MYCOPHENOLATE SODIUM
     Indication: Hyperphosphataemia
  5. MYFORTIC [Suspect]
     Active Substance: MYCOPHENOLATE SODIUM
     Indication: Renal hypertension
  6. MYFORTIC [Suspect]
     Active Substance: MYCOPHENOLATE SODIUM
     Indication: Peritoneal dialysis
  7. MYFORTIC [Suspect]
     Active Substance: MYCOPHENOLATE SODIUM
     Indication: Prophylaxis against transplant rejection
  8. PROGRAF [Suspect]
     Active Substance: TACROLIMUS
     Indication: Chronic kidney disease
     Dosage: 3 MG, BID
     Route: 048
     Dates: start: 20250910, end: 20250927
  9. PROGRAF [Suspect]
     Active Substance: TACROLIMUS
     Indication: Nephrogenic anaemia
     Dosage: 2.5 MG, BID
     Route: 048
  10. PROGRAF [Suspect]
     Active Substance: TACROLIMUS
     Indication: Hyperparathyroidism secondary
  11. PROGRAF [Suspect]
     Active Substance: TACROLIMUS
     Indication: Hyperphosphataemia
  12. PROGRAF [Suspect]
     Active Substance: TACROLIMUS
     Indication: Renal hypertension
  13. PROGRAF [Suspect]
     Active Substance: TACROLIMUS
     Indication: Peritoneal dialysis
  14. PROGRAF [Suspect]
     Active Substance: TACROLIMUS
     Indication: Prophylaxis against transplant rejection

REACTIONS (2)
  - Liver injury [Recovering/Resolving]
  - Off label use [Unknown]

NARRATIVE: CASE EVENT DATE: 20250922
